FAERS Safety Report 18996975 (Version 1)
Quarter: 2021Q1

REPORT INFORMATION
  Report Type: Spontaneous
  Country: US (occurrence: US)
  Receive Date: 20210310
  Receipt Date: 20210310
  Transmission Date: 20210420
  Serious: Yes (Death)
  Sender: FDA-Public Use
  Company Number: None

PATIENT
  Age: 11 Year
  Sex: Male

DRUGS (1)
  1. VIGABATRIN. [Suspect]
     Active Substance: VIGABATRIN
     Indication: STATUS EPILEPTICUS
     Dosage: ?          OTHER FREQUENCY:QAM ? QPM;?
     Route: 065
     Dates: start: 20191211, end: 20210303

REACTIONS (1)
  - Death [None]

NARRATIVE: CASE EVENT DATE: 20210303
